FAERS Safety Report 23118169 (Version 3)
Quarter: 2024Q2

REPORT INFORMATION
  Report Type: Report from Study
  Country: CA (occurrence: CA)
  Receive Date: 20231027
  Receipt Date: 20240515
  Transmission Date: 20240716
  Serious: Yes (Hospitalization, Other)
  Sender: FDA-Public Use
  Company Number: CA-HLS-202302442

PATIENT
  Sex: Male

DRUGS (1)
  1. CLOZARIL [Suspect]
     Active Substance: CLOZAPINE
     Indication: Product used for unknown indication
     Route: 048
     Dates: start: 20200812

REACTIONS (5)
  - Confusional state [Unknown]
  - Pyrexia [Unknown]
  - Haematuria [Unknown]
  - Constipation [Unknown]
  - Thrombocytopenia [Unknown]
